FAERS Safety Report 24140345 (Version 1)
Quarter: 2024Q3

REPORT INFORMATION
  Report Type: Spontaneous
  Country: US (occurrence: US)
  Receive Date: 20240726
  Receipt Date: 20240726
  Transmission Date: 20241017
  Serious: No
  Sender: ADVANZ PHARMA
  Company Number: US-ADVANZ PHARMA-202407005761

PATIENT

DRUGS (1)
  1. PHOTOFRIN [Suspect]
     Active Substance: PORFIMER SODIUM
     Indication: Malignant melanoma
     Dosage: UNK (4 WEEKS AGO)
     Dates: start: 20240607

REACTIONS (3)
  - Skin exfoliation [Not Recovered/Not Resolved]
  - Fall [Unknown]
  - Joint dislocation [Not Recovered/Not Resolved]
